FAERS Safety Report 16431493 (Version 2)
Quarter: 2019Q3

REPORT INFORMATION
  Report Type: Other
  Country: US (occurrence: US)
  Receive Date: 20190614
  Receipt Date: 20190722
  Transmission Date: 20191004
  Serious: Yes (Hospitalization)
  Sender: FDA-Public Use
  Company Number: US-MARY KAY INC.-2068228

PATIENT
  Age: 39 Year
  Sex: Female

DRUGS (1)
  1. MARY KAY TIMEWISE AGE MINIMIZE 3D DAY CREAM SPF 30 BROAD SP SUNSCREEN(OILY SKIN [Suspect]
     Active Substance: AVOBENZONE\HOMOSALATE\OCTISALATE\OCTOCRYLENE\OXYBENZONE
     Indication: PHOTOSENSITIVITY REACTION
     Route: 061
     Dates: start: 20190315, end: 20190526

REACTIONS (2)
  - Syncope [Recovering/Resolving]
  - Atrial fibrillation [Recovering/Resolving]

NARRATIVE: CASE EVENT DATE: 20190508
